FAERS Safety Report 10369221 (Version 1)
Quarter: 2014Q1

REPORT INFORMATION
  Report Type: Spontaneous
  Country: US (occurrence: None)
  Receive Date: 20140306
  Receipt Date: 20140306
  Transmission Date: 20141002
  Serious: Yes (Hospitalization)
  Sender: FDA-Public Use
  Company Number: 163-21880-13031162

PATIENT
  Age: 67 Year
  Sex: Male
  Weight: 82.56 kg

DRUGS (7)
  1. REVLIMID [Suspect]
     Indication: PLASMA CELL MYELOMA
     Route: 048
     Dates: start: 20121211
  2. AMLODIPINE BESYLATE (AMLODIPINE BESILATE) [Concomitant]
  3. DEXAMETHASONE (DEXAMETHSONE) [Concomitant]
  4. FLUOXETINE HCL (FLUOXETINE HYDROCHLORIDE) [Concomitant]
  5. OMEPRAZOLE (OMEPRAZOLE) [Concomitant]
  6. TRAZODONE HCL  (TRAZODONE HYDROCHLORIDE) ) [Concomitant]
  7. TYLENOL (PARACETAMOL) [Concomitant]

REACTIONS (2)
  - Meningitis [None]
  - Sepsis [None]
